FAERS Safety Report 22109890 (Version 1)
Quarter: 2023Q1

REPORT INFORMATION
  Report Type: Spontaneous
  Country: US (occurrence: None)
  Receive Date: 20230317
  Receipt Date: 20230317
  Transmission Date: 20230418
  Serious: Yes (Other)
  Sender: FDA-Public Use
  Company Number: None

PATIENT
  Age: 48 Year
  Sex: Female
  Weight: 75.75 kg

DRUGS (1)
  1. ARMODAFINIL [Suspect]
     Active Substance: ARMODAFINIL
     Indication: Hypersomnia
     Dosage: 250 MG DAILY PO??START THERAPY: LONG TERM MEDICATION
     Route: 048

REACTIONS (9)
  - Therapeutic response decreased [None]
  - Product substitution issue [None]
  - Headache [None]
  - Somnolence [None]
  - Dizziness [None]
  - Vision blurred [None]
  - Mood altered [None]
  - Impaired driving ability [None]
  - Impaired work ability [None]

NARRATIVE: CASE EVENT DATE: 20170427
